FAERS Safety Report 9981223 (Version 1)
Quarter: 2014Q1

REPORT INFORMATION
  Report Type: Spontaneous
  Country: US (occurrence: US)
  Receive Date: 20140307
  Receipt Date: 20140307
  Transmission Date: 20141002
  Serious: Yes (Death, Other)
  Sender: FDA-Public Use
  Company Number: 2014SP000659

PATIENT
  Age: 75 Year
  Sex: Male
  Weight: 63 kg

DRUGS (6)
  1. BROVANA [Suspect]
     Indication: CHRONIC OBSTRUCTIVE PULMONARY DISEASE
     Route: 055
  2. AMLODIPINE [Concomitant]
     Route: 048
  3. GLIMEPIRIDE [Concomitant]
     Route: 048
  4. ZOLPIDEM [Concomitant]
     Route: 048
  5. PRAMIPEXOLE [Concomitant]
  6. OXYBUTYNIN [Concomitant]

REACTIONS (3)
  - Death [Fatal]
  - Cerebrovascular accident [Unknown]
  - Dementia [Unknown]
